FAERS Safety Report 8084245-8 (Version None)
Quarter: 2012Q1

REPORT INFORMATION
  Report Type: 
  Country: None (occurrence: None)
  Receive Date: 20120128
  Receipt Date: 20110302
  Transmission Date: 20120608
  Serious: No
  Sender: FDA-Public Use
  Company Number: US-ABBOTT-11P-163-0709665-00

PATIENT
  Sex: Female
  Weight: 92.616 kg

DRUGS (6)
  1. TAMOXIFEN CITRATE [Concomitant]
     Indication: BREAST CANCER
  2. ZOCOR [Concomitant]
     Indication: BLOOD CHOLESTEROL INCREASED
  3. HUMIRA [Suspect]
     Indication: RHEUMATOID ARTHRITIS
     Dates: start: 20101101
  4. ASPIRIN [Concomitant]
     Indication: PRODUCT USED FOR UNKNOWN INDICATION
  5. SYNTHROID [Concomitant]
     Indication: HYPOTHYROIDISM
  6. METOPROLOL TARTRATE [Concomitant]
     Indication: HYPERTENSION

REACTIONS (5)
  - SPUTUM DISCOLOURED [None]
  - THROAT IRRITATION [None]
  - SINUS DISORDER [None]
  - NASAL CONGESTION [None]
  - HEADACHE [None]
